FAERS Safety Report 4547956-4 (Version None)
Quarter: 2005Q1

REPORT INFORMATION
  Report Type: 
  Country: None (occurrence: None)
  Receive Date: 20050110
  Receipt Date: 20050104
  Transmission Date: 20050727
  Serious: Yes (Hospitalization)
  Sender: FDA-Public Use
  Company Number: DE-JNJFOC-20050100988

PATIENT
  Age: 18 Year
  Sex: Male

DRUGS (4)
  1. DOLORMIN FUR KINDER [Suspect]
     Route: 049
  2. DOLORMIN FUR KINDER [Suspect]
     Indication: PAIN
     Route: 049
  3. ACETAMINOPHEN [Suspect]
  4. ACETAMINOPHEN [Suspect]
     Indication: DRUG USE FOR UNKNOWN INDICATION

REACTIONS (2)
  - DRUG INEFFECTIVE [None]
  - HAEMORRHAGE [None]
